FAERS Safety Report 18680002 (Version 3)
Quarter: 2023Q2

REPORT INFORMATION
  Report Type: Spontaneous
  Country: US (occurrence: US)
  Receive Date: 20201230
  Receipt Date: 20230505
  Transmission Date: 20230722
  Serious: Yes (Hospitalization)
  Sender: FDA-Public Use
  Company Number: US-JNJFOC-20201246953

PATIENT
  Age: 21 Year
  Sex: Female

DRUGS (6)
  1. PALIPERIDONE [Suspect]
     Active Substance: PALIPERIDONE
     Indication: Bipolar disorder
     Dosage: 7 TABLETS OF 6 MG PALIPERIDONE
     Route: 048
  2. TOPIRAMATE [Suspect]
     Active Substance: TOPIRAMATE
     Indication: Migraine
     Dosage: 7 TABLETS
     Route: 048
  3. MIRTAZAPINE [Suspect]
     Active Substance: MIRTAZAPINE
     Indication: Bipolar disorder
     Dosage: 7 TABLETS
     Route: 065
  4. CARIPRAZINE [Suspect]
     Active Substance: CARIPRAZINE
     Indication: Bipolar disorder
     Dosage: 20 OF HER 3 MG CARIPRAZINE TABLETS
     Route: 065
  5. SUMATRIPTAN [Suspect]
     Active Substance: SUMATRIPTAN
     Indication: Bipolar disorder
     Dosage: 2 TABLETS OF 100 MG
     Route: 065
  6. NAPROXEN [Suspect]
     Active Substance: NAPROXEN
     Indication: Migraine
     Dosage: 2 TABLETS
     Route: 065

REACTIONS (3)
  - Suicide attempt [Recovered/Resolved]
  - Overdose [Recovered/Resolved]
  - Atrioventricular block first degree [Recovered/Resolved]
